FAERS Safety Report 13786814 (Version 1)
Quarter: 2017Q3

REPORT INFORMATION
  Report Type: Spontaneous
  Country: US (occurrence: US)
  Receive Date: 20170725
  Receipt Date: 20170725
  Transmission Date: 20171127
  Serious: No
  Sender: FDA-Public Use
  Company Number: US-JNJFOC-20170614153

PATIENT
  Age: 9 Decade
  Sex: Female

DRUGS (2)
  1. TYLENOL EXTRA STRENGTH [Suspect]
     Active Substance: ACETAMINOPHEN
     Indication: BACK PAIN
     Dosage: IF STILL IN PAIN AT BEDTIME SHE WILL??TAKE 1 OR 2 DEPENDING ON HER PAIN LEVEL.
     Route: 048
  2. TYLENOL EXTRA STRENGTH [Suspect]
     Active Substance: ACETAMINOPHEN
     Indication: BACK PAIN
     Dosage: IF STILL IN PAIN AT BEDTIME SHE WILL TAKE 1 OR 2 DEPENDING ON HER PAIN LEVEL.
     Route: 048

REACTIONS (1)
  - Incorrect dose administered [Unknown]
